FAERS Safety Report 7309476-3 (Version None)
Quarter: 2011Q1

REPORT INFORMATION
  Report Type: 
  Country: None (occurrence: None)
  Receive Date: 20110223
  Receipt Date: 20110217
  Transmission Date: 20110831
  Serious: Yes (Hospitalization, Other)
  Sender: FDA-Public Use
  Company Number: FR-AMGEN-FRASP2011009317

PATIENT
  Sex: Female

DRUGS (2)
  1. NEUPOGEN [Suspect]
     Indication: CHEMOTHERAPY
  2. 5FU [Concomitant]

REACTIONS (1)
  - ACUTE LEUKAEMIA [None]
